FAERS Safety Report 9463615 (Version 2)
Quarter: 2013Q3

REPORT INFORMATION
  Report Type: Spontaneous
  Country: US (occurrence: US)
  Receive Date: 20130819
  Receipt Date: 20130819
  Transmission Date: 20140515
  Serious: No
  Sender: FDA-Public Use
  Company Number: US-009507513-1010USA00843

PATIENT
  Age: 50 Year
  Sex: Female

DRUGS (2)
  1. EMEND [Suspect]
     Indication: PROPHYLAXIS OF NAUSEA AND VOMITING
     Dosage: 115 MG, ONCE (ONCE TIME PER CHEMO CYCLE), VIAL
     Route: 042
     Dates: start: 201009
  2. EMEND [Suspect]
     Indication: CHEMOTHERAPY

REACTIONS (2)
  - Adverse event [Recovered/Resolved]
  - Flushing [Recovered/Resolved]
